FAERS Safety Report 9948038 (Version 2)
Quarter: 2014Q1

REPORT INFORMATION
  Report Type: Report from Study
  Country: US (occurrence: US)
  Receive Date: 20140303
  Receipt Date: 20140303
  Transmission Date: 20141002
  Serious: No
  Sender: FDA-Public Use
  Company Number: US-ABBVIE-12P-163-1016613-00

PATIENT
  Age: 61 Year
  Sex: Female

DRUGS (3)
  1. HUMIRA [Suspect]
     Indication: PSORIATIC ARTHROPATHY
     Route: 058
     Dates: start: 20120929
  2. HUMIRA [Suspect]
     Route: 058
     Dates: start: 20130224
  3. AMLODIPINE/BENAZEPRIL [Concomitant]
     Indication: BLOOD PRESSURE
     Dosage: 5MG/20MG EVERY DAY

REACTIONS (2)
  - Pharyngitis streptococcal [Recovering/Resolving]
  - Pharyngitis streptococcal [Recovered/Resolved]
